FAERS Safety Report 22127018 (Version 1)
Quarter: 2023Q1

REPORT INFORMATION
  Report Type: Spontaneous
  Country: US (occurrence: US)
  Receive Date: 20230322
  Receipt Date: 20230322
  Transmission Date: 20230418
  Serious: No
  Sender: FDA-Public Use
  Company Number: US-TARO PHARMACEUTICALS USA INC.-2022TAR01308

PATIENT

DRUGS (1)
  1. TRETINOIN [Suspect]
     Active Substance: TRETINOIN
     Indication: Product used for unknown indication
     Dosage: UNK, OD, ONCE DAILY AT BEDTIME, VERY LITTLE, HALF AN INCH ON FINGER AND DAB IT ON FOREHEAD, CHEEKS A
     Route: 061
     Dates: start: 202209

REACTIONS (3)
  - Dry skin [Not Recovered/Not Resolved]
  - Acne [Recovered/Resolved]
  - Off label use [Unknown]

NARRATIVE: CASE EVENT DATE: 20221021
